FAERS Safety Report 7637575-5 (Version None)
Quarter: 2011Q3

REPORT INFORMATION
  Report Type: 
  Country: None (occurrence: None)
  Receive Date: 20110726
  Receipt Date: 20110718
  Transmission Date: 20111222
  Serious: Yes (Hospitalization)
  Sender: FDA-Public Use
  Company Number: GR-GILEAD-2011-0042182

PATIENT
  Sex: Male
  Weight: 66 kg

DRUGS (8)
  1. RANEXA [Suspect]
     Indication: ANGINA PECTORIS
     Dates: start: 20110329, end: 20110601
  2. CLOPIDOGREL [Concomitant]
     Indication: ANGINA PECTORIS
     Dates: start: 20110201
  3. SIMVASTATIN [Concomitant]
     Dates: start: 20110201, end: 20110301
  4. FUROSEMIDE [Concomitant]
     Indication: CARDIAC FAILURE
  5. EPLERENONE [Concomitant]
     Indication: CARDIAC FAILURE
     Dates: start: 20110201, end: 20110301
  6. SALICYLIC ACID [Concomitant]
     Indication: ANGINA PECTORIS
     Dates: start: 20110201
  7. METOPROLOL TARTRATE [Concomitant]
     Indication: ANGINA PECTORIS
     Dates: start: 20110201
  8. LISINOPRIL [Concomitant]
     Indication: ANGINA PECTORIS
     Dates: start: 20110201

REACTIONS (1)
  - ACUTE MYOCARDIAL INFARCTION [None]
